FAERS Safety Report 24890918 (Version 1)
Quarter: 2025Q1

REPORT INFORMATION
  Report Type: Spontaneous
  Country: US (occurrence: None)
  Receive Date: 20250127
  Receipt Date: 20250127
  Transmission Date: 20250409
  Serious: Yes (Hospitalization)
  Sender: FDA-CTU
  Company Number: None

PATIENT
  Age: 65 Year
  Sex: Male
  Weight: 123.75 kg

DRUGS (1)
  1. CEFEPIME [Suspect]
     Active Substance: CEFEPIME HYDROCHLORIDE
     Indication: Renal injury
     Dosage: DAILY INTRAVENOUS
     Route: 042
     Dates: start: 20250121, end: 20250126

REACTIONS (1)
  - Renal disorder [None]

NARRATIVE: CASE EVENT DATE: 20250126
